FAERS Safety Report 8820732 (Version 1)
Quarter: 2012Q4

REPORT INFORMATION
  Report Type: 
  Country: US (occurrence: US)
  Receive Date: 20121002
  Receipt Date: 20121002
  Transmission Date: 20130627
  Serious: Yes (Other)
  Sender: FDA-Public Use
  Company Number: US-PFIZER INC-2012242198

PATIENT
  Sex: Male

DRUGS (2)
  1. NEURONTIN [Suspect]
     Indication: SLEEP DISORDER
     Dosage: UNK
  2. NEURONTIN [Suspect]
     Indication: ANXIETY

REACTIONS (3)
  - Urinary retention [Unknown]
  - Urinary hesitation [Unknown]
  - Off label use [Unknown]
